FAERS Safety Report 10089143 (Version 3)
Quarter: 2014Q2

REPORT INFORMATION
  Report Type: Report from Study
  Country: AU (occurrence: AU)
  Receive Date: 20140421
  Receipt Date: 20140506
  Transmission Date: 20141212
  Serious: Yes (Other)
  Sender: FDA-Public Use
  Company Number: PHHY2014AU047405

PATIENT
  Age: 45 Year
  Sex: Male

DRUGS (7)
  1. LEPONEX / CLOZARIL [Suspect]
     Indication: SCHIZOPHRENIA
     Dosage: UNK UKN, UNK
  2. LEPONEX / CLOZARIL [Suspect]
     Dosage: 400 MG, QD (400 MG, NOCTE)
  3. MODECATE [Concomitant]
     Dosage: 25 MG, QMO
     Route: 065
  4. RAMIPRIL [Concomitant]
     Dosage: 5 MG, QD (5 MG, NOCTE)
  5. PARACETAMOL [Concomitant]
     Dosage: 1 G, TID
  6. DIAZEPAM [Concomitant]
     Dosage: 5 MG, PRN
  7. COLOXYL [Concomitant]
     Dosage: 2 DF, PRN

REACTIONS (11)
  - Mitral valve disease [Unknown]
  - Left ventricular hypertrophy [Unknown]
  - Hyperdynamic left ventricle [Unknown]
  - Diastolic dysfunction [Unknown]
  - Left atrial dilatation [Unknown]
  - Blood pressure increased [Unknown]
  - Anxiety [Unknown]
  - Pain [Unknown]
  - Dental caries [Unknown]
  - Constipation [Unknown]
  - Drug ineffective [Unknown]
